FAERS Safety Report 7399496-5 (Version None)
Quarter: 2011Q2

REPORT INFORMATION
  Report Type: 
  Country: None (occurrence: None)
  Receive Date: 20110407
  Receipt Date: 20110404
  Transmission Date: 20111010
  Serious: Yes (Death, Hospitalization)
  Sender: FDA-Public Use
  Company Number: PHHY2011US25916

PATIENT
  Sex: Female
  Weight: 71.202 kg

DRUGS (8)
  1. RECLAST [Suspect]
     Indication: OSTEOPOROSIS
     Dosage: 5 MG,
     Route: 042
     Dates: start: 20080509
  2. HYDROCHLOROTHIAZIDE [Concomitant]
     Indication: HYPERTENSION
     Dosage: 25 MG,
     Route: 048
  3. HYDROXYZINE [Concomitant]
     Route: 048
  4. FOSAMAX [Concomitant]
  5. RECLAST [Suspect]
     Dosage: 5 MG,
     Route: 042
     Dates: start: 20090519
  6. TUMS [Concomitant]
     Route: 048
  7. SIMVASTATIN [Concomitant]
     Indication: HYPERCHOLESTEROLAEMIA
     Route: 048
  8. ACTONEL [Concomitant]

REACTIONS (5)
  - HEMIPARESIS [None]
  - CONVULSION [None]
  - GLIOBLASTOMA [None]
  - DEATH [None]
  - RHINORRHOEA [None]
